FAERS Safety Report 4559949-1 (Version None)
Quarter: 2005Q1

REPORT INFORMATION
  Report Type: 
  Country: None (occurrence: None)
  Receive Date: 20050120
  Receipt Date: 20050120
  Transmission Date: 20050727
  Serious: Yes (Other)
  Sender: FDA-Public Use
  Company Number: None

PATIENT
  Sex: Female
  Weight: 121.1104 kg

DRUGS (9)
  1. BENAZEPRIL  30MG [Suspect]
     Indication: HYPERTENSION
     Dosage: 30 MG PO DAILY    PRIOR TO 4/01 TO PRESENT
     Route: 048
  2. ZANTAC [Suspect]
     Indication: GASTROOESOPHAGEAL REFLUX DISEASE
     Dosage: 300MG PO BID   PRIOR TO 4/01 TO PRESENT
     Route: 048
  3. HYDROCHLOROTHIAZIDE [Concomitant]
  4. SYNTHROID [Concomitant]
  5. ASPIRIN [Concomitant]
  6. ALLEGRA [Concomitant]
  7. AZMACORT [Concomitant]
  8. COMBIVENT [Concomitant]
  9. XANAX [Concomitant]

REACTIONS (3)
  - DYSPNOEA [None]
  - SWOLLEN TONGUE [None]
  - THROAT TIGHTNESS [None]
